FAERS Safety Report 6732752-X (Version None)
Quarter: 2010Q2

REPORT INFORMATION
  Report Type: 
  Country: None (occurrence: None)
  Receive Date: 20100519
  Receipt Date: 20100506
  Transmission Date: 20101027
  Serious: Yes (Hospitalization, Other)
  Sender: FDA-Public Use
  Company Number: US-AMGEN-QUU411073

PATIENT
  Sex: Female

DRUGS (2)
  1. ENBREL [Suspect]
     Indication: RHEUMATOID ARTHRITIS
     Route: 058
     Dates: start: 20090923
  2. METHOTREXATE [Concomitant]
     Route: 048

REACTIONS (6)
  - ARTHRITIS INFECTIVE [None]
  - INCISIONAL DRAINAGE [None]
  - JOINT INJURY [None]
  - JOINT SWELLING [None]
  - OSTEOARTHRITIS [None]
  - RHEUMATOID ARTHRITIS [None]
